FAERS Safety Report 8773373 (Version 1)
Quarter: 2012Q4

REPORT INFORMATION
  Report Type: 
  Country: CA (occurrence: CA)
  Receive Date: 20120907
  Receipt Date: 20120907
  Transmission Date: 20130627
  Serious: Yes (Hospitalization, Other)
  Sender: FDA-Public Use
  Company Number: CA-009507513-1206USA01559

PATIENT

DRUGS (6)
  1. FOSAMAX [Suspect]
     Indication: OSTEOPOROSIS
     Dosage: UNK UNK, QW
     Route: 048
     Dates: start: 2003, end: 2006
  2. FOSAMAX [Suspect]
     Dosage: UNK UNK, QW
     Route: 048
     Dates: end: 201110
  3. FOSAMAX [Suspect]
     Dosage: UNK
  4. CALCIUM (UNSPECIFIED) [Concomitant]
     Dosage: 1000 mg, qd
  5. VITAMIN D (UNSPECIFIED) [Concomitant]
     Dosage: 1000 IU, qd
  6. AERIUS (DESLORATADINE) [Concomitant]
     Dosage: UNK

REACTIONS (1)
  - Femur fracture [Unknown]
